FAERS Safety Report 6438136-6 (Version None)
Quarter: 2009Q4

REPORT INFORMATION
  Report Type: 
  Country: None (occurrence: None)
  Receive Date: 20091112
  Receipt Date: 20091028
  Transmission Date: 20100525
  Serious: Yes (Congenital Anomaly, Other)
  Sender: FDA-Public Use
  Company Number: GB-PFIZER INC-2009290208

PATIENT
  Sex: Female

DRUGS (5)
  1. METHYLPREDNISOLONE AND METHYLPREDNISOLONE ACETATE AND METHYLPREDNISOLO [Suspect]
     Indication: MICROSCOPIC POLYANGIITIS
     Dosage: 1 G, 1X/DAY
     Route: 064
  2. PREDNISOLONE AND PREDNISOLONE STEAGLATE [Suspect]
     Indication: MICROSCOPIC POLYANGIITIS
     Dosage: 60 MG, UNK
     Route: 064
  3. CYCLOPHOSPHAMIDE [Suspect]
     Indication: MICROSCOPIC POLYANGIITIS
     Dosage: 1 G, UNK
     Route: 064
  4. BETAMETHASONE BENZOATE [Suspect]
     Indication: PROPHYLAXIS
     Route: 064
  5. CO-TRIMOXAZOLE [Suspect]
     Route: 064

REACTIONS (4)
  - FOETAL GROWTH RETARDATION [None]
  - PELVIC KIDNEY [None]
  - PREGNANCY [None]
  - SOLITARY KIDNEY [None]
